FAERS Safety Report 6955221-0 (Version None)
Quarter: 2010Q3

REPORT INFORMATION
  Report Type: 
  Country: None (occurrence: None)
  Receive Date: 20100830
  Receipt Date: 20100816
  Transmission Date: 20110219
  Serious: Yes (Other)
  Sender: FDA-Public Use
  Company Number: US-ELI_LILLY_AND_COMPANY-US201008004636

PATIENT
  Age: 60 Year
  Sex: Female
  Weight: 78.912 kg

DRUGS (12)
  1. CYMBALTA [Suspect]
     Indication: DEPRESSION
     Dosage: 60 MG, EACH MORNING
  2. CYMBALTA [Suspect]
     Dosage: 30 MG, EACH EVENING
  3. LYRICA [Concomitant]
     Indication: FIBROMYALGIA
     Dosage: 50 MG, DAILY (1/D)
     Route: 048
  4. XANAX [Concomitant]
  5. PERCODAN                           /00090001/ [Concomitant]
     Indication: MIGRAINE
  6. FLEXERIL [Concomitant]
  7. QUINAPRIL [Concomitant]
     Indication: MIGRAINE
  8. PHRENILIN [Concomitant]
  9. LEVOXYL [Concomitant]
     Indication: THYROID DISORDER
  10. KLONOPIN [Concomitant]
  11. MORPHINE [Concomitant]
  12. ALPRAZOLAM [Concomitant]
     Indication: ANXIETY

REACTIONS (12)
  - BLOOD URINE PRESENT [None]
  - DERMATITIS BULLOUS [None]
  - DIPLOPIA [None]
  - HOT FLUSH [None]
  - MUSCULOSKELETAL STIFFNESS [None]
  - PYREXIA [None]
  - RASH [None]
  - SOMNOLENCE [None]
  - SUNBURN [None]
  - SWELLING [None]
  - WEIGHT INCREASED [None]
  - WHITE BLOOD CELL COUNT INCREASED [None]
